FAERS Safety Report 4783378-9 (Version None)
Quarter: 2005Q3

REPORT INFORMATION
  Report Type: 
  Country: None (occurrence: None)
  Receive Date: 20050929
  Receipt Date: 20050922
  Transmission Date: 20060218
  Serious: Yes (Other)
  Sender: FDA-Public Use
  Company Number: FR-ROCHE-418805

PATIENT
  Age: 57 Year
  Sex: Female

DRUGS (3)
  1. XENICAL [Suspect]
     Indication: OBESITY
     Route: 048
  2. ALDACTAZINE [Concomitant]
  3. IXEL [Concomitant]
     Indication: DEPRESSION

REACTIONS (1)
  - DIABETES MELLITUS [None]
